FAERS Safety Report 8147628 (Version 2)
Quarter: 2013Q1

REPORT INFORMATION
  Report Type: Spontaneous
  Country: US (occurrence: US)
  Receive Date: 20110922
  Receipt Date: 20130215
  Transmission Date: 20140127
  Serious: Yes (Other)
  Sender: FDA-Public Use
  Company Number: US-ASTRAZENECA-2011SE12683

PATIENT
  Sex: 0
  Weight: 100.7 kg

DRUGS (2)
  1. SEROQUEL [Suspect]
     Indication: SLEEP DISORDER
     Dosage: TAKE ONE HALF TABLET BY MOUTH AT BED TIME
     Route: 048
     Dates: end: 20060823
  2. SEROQUEL [Suspect]
     Indication: SLEEP DISORDER
     Dosage: TAKE ONE HALF TABLET BY MOUTH AT BED TIME
     Route: 048
     Dates: start: 20060823

REACTIONS (3)
  - Pancreatitis [Unknown]
  - Diabetic coma [Unknown]
  - Type 2 diabetes mellitus [Unknown]
